FAERS Safety Report 16259262 (Version 1)
Quarter: 2019Q2

REPORT INFORMATION
  Report Type: Spontaneous
  Country: US (occurrence: US)
  Receive Date: 20190501
  Receipt Date: 20190501
  Transmission Date: 20190711
  Serious: No
  Sender: FDA-Public Use
  Company Number: US-ELI_LILLY_AND_COMPANY-US201904013884

PATIENT
  Sex: Male

DRUGS (5)
  1. METFORMIN [Concomitant]
     Active Substance: METFORMIN HYDROCHLORIDE
     Indication: TYPE 2 DIABETES MELLITUS
  2. BASAGLAR [Suspect]
     Active Substance: INSULIN GLARGINE
     Dosage: 15 INTERNATIONAL UNIT, EACH MORNING
     Route: 058
  3. BASAGLAR [Suspect]
     Active Substance: INSULIN GLARGINE
     Indication: TYPE 2 DIABETES MELLITUS
     Dosage: 10 INTERNATIONAL UNIT, UNKNOWN
     Route: 058
     Dates: start: 20190213
  4. BASAGLAR [Suspect]
     Active Substance: INSULIN GLARGINE
     Dosage: 11 INTERNATIONAL UNIT, UNKNOWN
     Route: 058
     Dates: start: 20190411
  5. BASAGLAR [Suspect]
     Active Substance: INSULIN GLARGINE
     Dosage: 22 INTERNATIONAL UNIT, EACH EVENING (NIGHT)
     Route: 058

REACTIONS (3)
  - Blood glucose increased [Unknown]
  - Inappropriate schedule of product administration [Unknown]
  - Underdose [Unknown]
